FAERS Safety Report 6599281-8 (Version None)
Quarter: 2010Q1

REPORT INFORMATION
  Report Type: 
  Country: None (occurrence: None)
  Receive Date: 20100224
  Receipt Date: 20100216
  Transmission Date: 20100710
  Serious: Yes (Other)
  Sender: FDA-Public Use
  Company Number: SE-BAYER-201016296GPV

PATIENT
  Age: 64 Year
  Sex: Female

DRUGS (8)
  1. FLUDARABINE [Suspect]
     Indication: STEM CELL TRANSPLANT
  2. CYTARABINE [Suspect]
     Indication: STEM CELL TRANSPLANT
  3. THYMOGLOBULIN [Suspect]
     Indication: STEM CELL TRANSPLANT
  4. TACROLIMUS [Suspect]
     Indication: IMMUNOSUPPRESSION
     Dosage: TROUGH LEVEL 50 NG/ML
  5. TACROLIMUS [Suspect]
  6. SIROLIMUS [Suspect]
     Indication: IMMUNOSUPPRESSION
     Dosage: 5 NG/ML)
  7. SIROLIMUS [Suspect]
  8. CYCLOSPORINE [Concomitant]
     Indication: IMMUNOSUPPRESSION
     Dosage: TROUGH LEVEL 200-300 NG/ML

REACTIONS (11)
  - BLINDNESS UNILATERAL [None]
  - C-REACTIVE PROTEIN INCREASED [None]
  - EXOPHTHALMOS [None]
  - HEADACHE [None]
  - NAUSEA [None]
  - NEUTROPENIA [None]
  - ORBITAL APEX SYNDROME [None]
  - PERIORBITAL OEDEMA [None]
  - PYREXIA [None]
  - SINUSITIS FUNGAL [None]
  - THERAPEUTIC RESPONSE DECREASED [None]
